FAERS Safety Report 25476699 (Version 4)
Quarter: 2025Q4

REPORT INFORMATION
  Report Type: Spontaneous
  Country: EU (occurrence: EU)
  Receive Date: 20250625
  Receipt Date: 20251124
  Transmission Date: 20260118
  Serious: Yes (Hospitalization, Other)
  Sender: SANDOZ
  Company Number: EU-SA-2020SA114326

PATIENT
  Age: 15 Year
  Sex: Female

DRUGS (100)
  1. AMSACRINE [Suspect]
     Active Substance: AMSACRINE
     Dosage: 100 MG/M2, QD, DAY 1,2 AND 3
     Route: 065
  2. AMSACRINE [Suspect]
     Active Substance: AMSACRINE
     Indication: Acute myeloid leukaemia
     Dosage: 100 MG/M2, EVERY 1 DAY (100 MILLIGRAM /SQ. METER, QD)
     Route: 065
  3. CYCLOPHOSPHAMIDE [Suspect]
     Active Substance: CYCLOPHOSPHAMIDE
     Indication: Bone marrow conditioning regimen
     Dosage: UNK
     Route: 065
  4. CYCLOPHOSPHAMIDE [Suspect]
     Active Substance: CYCLOPHOSPHAMIDE
     Indication: Drug therapy
     Dosage: UNK
     Route: 065
  5. CYCLOPHOSPHAMIDE [Suspect]
     Active Substance: CYCLOPHOSPHAMIDE
     Dosage: UNK
     Route: 065
  6. CYTARABINE [Suspect]
     Active Substance: CYTARABINE
     Indication: Salvage therapy
     Dosage: 200 MILLIGRAM/SQ. METER, QD
     Route: 065
  7. CYTARABINE [Suspect]
     Active Substance: CYTARABINE
     Dosage: 3 GRAM PER SQUARE METRE EVERY 12 HOURS (3 GRAM PER SQUARE METRE, BID)
     Route: 065
  8. CYTARABINE [Suspect]
     Active Substance: CYTARABINE
     Dosage: 3 MILLIGRAM/SQ. METER, Q12H
     Route: 065
  9. CYTARABINE [Suspect]
     Active Substance: CYTARABINE
     Dosage: 3G/M2 FOR 3 DAYS DURING CONSOLIDATION THERAPY
     Route: 065
  10. CYTARABINE [Suspect]
     Active Substance: CYTARABINE
     Dosage: UNK UNK, Q12H
     Route: 065
  11. CYTARABINE [Suspect]
     Active Substance: CYTARABINE
     Indication: Acute myeloid leukaemia (in remission)
     Dosage: UNK, Q12H
     Route: 065
  12. CYTARABINE [Suspect]
     Active Substance: CYTARABINE
     Dosage: 200 MG/M2 DAILY; CONTINUOUS INJECTION OR  7 DAYS DURING INDUCTION THERAPY
     Route: 065
  13. CYTARABINE [Suspect]
     Active Substance: CYTARABINE
     Dosage: 200 MG/M2, QD, CONTINUOUS INJECTION, DAY 1-7/400 MG/DAY
     Route: 065
  14. CYTARABINE [Suspect]
     Active Substance: CYTARABINE
     Indication: Acute myeloid leukaemia
     Dosage: 200 MILLIGRAM/SQ. METER
     Route: 065
  15. CYTARABINE [Suspect]
     Active Substance: CYTARABINE
     Dosage: 200 MILLIGRAM/SQ. METER
     Route: 065
  16. CYTARABINE [Suspect]
     Active Substance: CYTARABINE
     Dosage: 200 MILLIGRAM/SQ. METER, QD
     Route: 065
  17. CYTARABINE [Suspect]
     Active Substance: CYTARABINE
     Dosage: 200 MILLIGRAM/SQ. METER, QD
     Route: 065
  18. CYTARABINE [Suspect]
     Active Substance: CYTARABINE
     Dosage: 2000 MG/M2, FROM DAYS 1-5
     Route: 037
  19. CYTARABINE [Suspect]
     Active Substance: CYTARABINE
     Dosage: 2000 MILLIGRAM/SQ. METER
     Route: 065
  20. CYTARABINE [Suspect]
     Active Substance: CYTARABINE
     Dosage: UNK
     Route: 037
  21. CYTARABINE [Suspect]
     Active Substance: CYTARABINE
     Dosage: UNK
     Route: 037
  22. CYTARABINE [Suspect]
     Active Substance: CYTARABINE
     Dosage: UNK
     Route: 037
  23. CYTARABINE [Suspect]
     Active Substance: CYTARABINE
     Dosage: UNK
     Route: 037
  24. CYTARABINE [Suspect]
     Active Substance: CYTARABINE
     Dosage: UNK
     Route: 037
  25. CYTARABINE [Suspect]
     Active Substance: CYTARABINE
     Dosage: UNK
     Route: 037
  26. CYTARABINE [Suspect]
     Active Substance: CYTARABINE
     Dosage: UNK
     Route: 037
  27. CYTARABINE [Suspect]
     Active Substance: CYTARABINE
     Indication: Drug therapy
     Dosage: UNK, DURING INDUCTION THERAPY ON DAY 1 AND 7
     Route: 037
  28. CYTARABINE [Suspect]
     Active Substance: CYTARABINE
     Indication: Acute myeloid leukaemia refractory
     Dosage: UNKNOWN DOSE
     Route: 037
  29. CYTARABINE [Suspect]
     Active Substance: CYTARABINE
     Dosage: UNKNOWN DOSE
     Route: 037
  30. DECADRON (DEXAMETHASONE SODIUM PHOSPHATE) [Suspect]
     Active Substance: DEXAMETHASONE SODIUM PHOSPHATE
     Indication: Acute myeloid leukaemia
     Dosage: UNK, DURING INDUCTION THERAPY
     Route: 037
  31. DECADRON (DEXAMETHASONE SODIUM PHOSPHATE) [Suspect]
     Active Substance: DEXAMETHASONE SODIUM PHOSPHATE
     Dosage: UNK
     Route: 037
  32. DECADRON (DEXAMETHASONE SODIUM PHOSPHATE) [Suspect]
     Active Substance: DEXAMETHASONE SODIUM PHOSPHATE
     Dosage: UNKNOWN DOSE
     Route: 037
  33. DEFITELIO [Suspect]
     Active Substance: DEFIBROTIDE SODIUM
     Indication: Prophylaxis
     Dosage: 25 MG/KG, 6.25 MG/KG, EVERY 6 HOURS (6.25 MILLIGRAM/KILOGRAM (380 MILLIGRAM PER DOSE), QID)
     Route: 042
     Dates: start: 20141111, end: 20141201
  34. DEFITELIO [Suspect]
     Active Substance: DEFIBROTIDE SODIUM
     Indication: Stem cell transplant
     Dosage: 6.25 MG/KG, EVERY 6 HOURS (6.25 MILLIGRAM/KILOGRAM (380 MILLIGRAM PER DOSE), QID)
     Route: 042
     Dates: start: 20141111, end: 20141201
  35. DEFITELIO [Suspect]
     Active Substance: DEFIBROTIDE SODIUM
     Indication: Prophylaxis
  36. DEFITELIO [Suspect]
     Active Substance: DEFIBROTIDE SODIUM
     Indication: Venoocclusive liver disease
  37. FLUDARABINE [Suspect]
     Active Substance: FLUDARABINE PHOSPHATE
     Indication: Acute myeloid leukaemia
     Dosage: 30 MG/M2 EVERY 30 MINUTES, DAY 1-5(CONDITIONING THERAPY AFTER TRANSPLANT)
     Route: 065
  38. FLUDARABINE [Suspect]
     Active Substance: FLUDARABINE PHOSPHATE
     Indication: Acute myeloid leukaemia refractory
     Dosage: UNK,30 MILLIGRAM/SQ. METER
     Route: 065
  39. FLUDARABINE [Suspect]
     Active Substance: FLUDARABINE PHOSPHATE
     Indication: Drug therapy
     Dosage: UNK,30 MILLIGRAM/SQ. METER
     Route: 065
  40. FLUDARABINE [Suspect]
     Active Substance: FLUDARABINE PHOSPHATE
     Indication: Salvage therapy
     Dosage: UNK,30 MILLIGRAM/SQ. METER
     Route: 065
  41. FLUDARABINE [Suspect]
     Active Substance: FLUDARABINE PHOSPHATE
     Dosage: UNK
     Route: 065
  42. FLUDARABINE PHOSPHATE [Suspect]
     Active Substance: FLUDARABINE PHOSPHATE
     Indication: Drug therapy
     Dosage: 30 MG/M2 EVERY 30 MINUTES, DAY 1-5 (CONDITIONING THERAPY AFTER TRANSPLANT)
     Route: 065
  43. FLUDARABINE PHOSPHATE [Suspect]
     Active Substance: FLUDARABINE PHOSPHATE
     Indication: Acute myeloid leukaemia
  44. FLUDARABINE PHOSPHATE [Suspect]
     Active Substance: FLUDARABINE PHOSPHATE
     Indication: Acute myeloid leukaemia
  45. FLUDARABINE PHOSPHATE [Suspect]
     Active Substance: FLUDARABINE PHOSPHATE
     Indication: Acute myeloid leukaemia refractory
  46. FLUDARABINE PHOSPHATE [Suspect]
     Active Substance: FLUDARABINE PHOSPHATE
     Indication: Salvage therapy
  47. GEMTUZUMAB OZOGAMICIN [Suspect]
     Active Substance: GEMTUZUMAB OZOGAMICIN
     Indication: Acute myeloid leukaemia
     Dosage: 3 MG/M2, Q12H (3 MILLIGRAM/SQ. METER,  BID)
     Route: 065
  48. GEMTUZUMAB OZOGAMICIN [Suspect]
     Active Substance: GEMTUZUMAB OZOGAMICIN
     Dosage: 3 MG/M2 (ON DAYS 1, 4 AND 7)
     Route: 050
  49. GEMTUZUMAB OZOGAMICIN [Suspect]
     Active Substance: GEMTUZUMAB OZOGAMICIN
     Indication: Salvage therapy
     Dosage: 6 MG/M2, QD (3 MG/M2, BID DAY 1,4 AND 7 DURING SUPPLEMENTARY COURSE)
     Route: 042
  50. GEMTUZUMAB OZOGAMICIN [Suspect]
     Active Substance: GEMTUZUMAB OZOGAMICIN
     Indication: Acute myeloid leukaemia refractory
     Dosage: (2 X 3 MG/M2) DURING SUPPLEMENTARY  COURSE
     Route: 065
  51. HYDROCORTISONE [Suspect]
     Active Substance: HYDROCORTISONE
     Dosage: 120 DOSAGE FORM, UNKNOWN
     Route: 037
  52. HYDROCORTISONE [Suspect]
     Active Substance: HYDROCORTISONE
     Dosage: UNK
     Route: 037
  53. HYDROCORTISONE [Suspect]
     Active Substance: HYDROCORTISONE
     Indication: Acute myeloid leukaemia
     Dosage: UNK, PRN
     Route: 037
  54. HYDROCORTISONE [Suspect]
     Active Substance: HYDROCORTISONE
     Dosage: UNK, UNKNOWN DOSE
     Route: 037
  55. ICLUSIG [Suspect]
     Active Substance: PONATINIB HYDROCHLORIDE
     Indication: Product used for unknown indication
     Dosage: 45 MG, EVERY 1 DAY (45 MILLIGRAM, QD)
     Route: 065
  56. ICLUSIG [Suspect]
     Active Substance: PONATINIB HYDROCHLORIDE
     Indication: Acute myeloid leukaemia
     Dosage: 45 MG, QD
     Route: 065
  57. METHOTREXATE [Suspect]
     Active Substance: METHOTREXATE
     Dosage: 120 DF DURING INDUCTION THERAPY
     Route: 037
  58. METHOTREXATE [Suspect]
     Active Substance: METHOTREXATE
     Indication: Acute myeloid leukaemia
     Dosage: DAY 1,4 AND 7, INJECTION
     Route: 037
  59. METHOTREXATE [Suspect]
     Active Substance: METHOTREXATE
     Dosage: UNK, UNKNOWN DOSE
     Route: 037
  60. MITOXANTRONE [Suspect]
     Active Substance: MITOXANTRONE HYDROCHLORIDE
     Indication: Acute myeloid leukaemia
     Dosage: 12 MG/M2 (DAY 1-5), FOR 5 DAYS DURING INDUCTION THERAPY
     Route: 065
  61. MITOXANTRONE [Suspect]
     Active Substance: MITOXANTRONE HYDROCHLORIDE
     Dosage: 12 MILLIGRAM/SQ. METER
     Route: 065
  62. MITOXANTRONE [Suspect]
     Active Substance: MITOXANTRONE HYDROCHLORIDE
     Dosage: FOR 5 DAYS DURING INDUCTION THERAPY
     Route: 065
  63. RITUXIMAB [Suspect]
     Active Substance: RITUXIMAB
     Indication: Bone marrow conditioning regimen
     Dosage: UNKNOWN DOSE
     Route: 065
  64. RITUXIMAB [Suspect]
     Active Substance: RITUXIMAB
     Indication: Drug therapy
     Dosage: UNKNOWN DOSE
     Route: 065
  65. RITUXIMAB [Suspect]
     Active Substance: RITUXIMAB
     Indication: Alloimmunisation
     Dosage: UNK, CONCENTRATE FOR SOLUTION FOR INFUSION
     Route: 065
  66. RITUXIMAB [Suspect]
     Active Substance: RITUXIMAB
     Indication: Drug therapy
     Dosage: UNK, CONDITIONING THERAPY AFTER TRANSPLANT
     Route: 065
  67. RITUXIMAB [Suspect]
     Active Substance: RITUXIMAB
     Indication: Bone marrow conditioning regimen
  68. AMSACRINE [Concomitant]
     Active Substance: AMSACRINE
     Indication: Acute myeloid leukaemia
     Dosage: 100 MG/M2 DAILY
     Route: 065
  69. CANCIDAS [Concomitant]
     Active Substance: CASPOFUNGIN ACETATE
     Indication: Stem cell transplant
     Dosage: 70 MG, QD, (70 MG/J, 1/J), 70 MG/DAY, 1/DAY, 70 MILLIGRAM, QD
     Route: 042
     Dates: start: 20141125
  70. CANCIDAS [Concomitant]
     Active Substance: CASPOFUNGIN ACETATE
     Dosage: 70 MG/J, 1/J
     Route: 042
     Dates: start: 20141125
  71. CELLCEPT [Concomitant]
     Active Substance: MYCOPHENOLATE MOFETIL
     Indication: Stem cell transplant
     Dosage: 1250 MG, Q12H (1,250 MG/12 H, 2/DAY), 1250 MILLIGRAM
     Route: 042
     Dates: start: 20141110
  72. CYCLOSPORINE [Concomitant]
     Active Substance: CYCLOSPORINE
     Indication: Stem cell transplant
     Dosage: 60 MG, Q12H (60 MG/12 H, 2/DAY), 60 MG/12H, 2/J,
     Route: 042
     Dates: start: 20141110
  73. Clofarabin alvogen [Concomitant]
     Indication: Acute myeloid leukaemia
     Dosage: 40 MG/M2, EVERY 1 DAY (40 MILLIGRAM/SQ. METER, QD)
     Route: 065
  74. Clofarabin alvogen [Concomitant]
     Dosage: UNK
     Route: 065
  75. DAUNORUBICIN HYDROCHLORIDE [Concomitant]
     Active Substance: DAUNORUBICIN HYDROCHLORIDE
     Indication: Acute myeloid leukaemia
     Dosage: 60 MG/M2, EVERY 1 DAY (60 MILLIGRAM/SQ. METER, QD)
     Route: 065
  76. URSODIOL [Concomitant]
     Active Substance: URSODIOL
     Indication: Prophylaxis
     Dosage: 250 MILLIGRAM, BID (2/DAY), 250 MG/DOSE, 2/J
     Route: 048
     Dates: start: 20141110
  77. URSODIOL [Concomitant]
     Active Substance: URSODIOL
     Indication: Stem cell transplant
     Dosage: 500 MG, QD
     Route: 048
     Dates: start: 20141110
  78. URSODIOL [Concomitant]
     Active Substance: URSODIOL
     Indication: Stem cell transplant
  79. URSODIOL [Concomitant]
     Active Substance: URSODIOL
     Indication: Stem cell transplant
  80. URSODIOL [Concomitant]
     Active Substance: URSODIOL
     Indication: Venoocclusive liver disease
  81. FLUCONAZOLE [Concomitant]
     Active Substance: FLUCONAZOLE
     Indication: Stem cell transplant
     Dosage: 400 MILLIGRAM, QD, 400MGJ, 1/J, 400 MG/DAY, 1/DAY
     Route: 042
     Dates: start: 20141125
  82. FLUCONAZOLE [Concomitant]
     Active Substance: FLUCONAZOLE
     Dosage: UNK, 400MGJ, 1/J
     Route: 042
     Dates: start: 20141125
  83. FLUDARABINE PHOSPHATE [Concomitant]
     Active Substance: FLUDARABINE PHOSPHATE
     Indication: Acute myeloid leukaemia
     Dosage: 30 MILLIGRAM/SQ. METER, QD
     Route: 065
  84. FLUDARABINE PHOSPHATE [Concomitant]
     Active Substance: FLUDARABINE PHOSPHATE
     Dosage: 30 MILLIGRAM/SQ. METER, QD
     Route: 065
  85. METHYLPREDNISOLONE [Concomitant]
     Active Substance: METHYLPREDNISOLONE
     Indication: Stem cell transplant
     Dosage: 30 MG, Q12H (30 MG/12 H, 2/DAY)
     Route: 042
     Dates: start: 20141128
  86. METHYLPREDNISOLONE [Concomitant]
     Active Substance: METHYLPREDNISOLONE
     Indication: Stem cell transplant
     Dosage: 30 MG/12H, 2/J
     Route: 042
     Dates: start: 20141128
  87. METHYLPREDNISOLONE [Concomitant]
     Active Substance: METHYLPREDNISOLONE
     Indication: Stem cell transplant
  88. ONDANSETRON [Concomitant]
     Active Substance: ONDANSETRON
     Indication: Stem cell transplant
     Dosage: 16 MG, QD, 8 MG/DOSE, 2/DAY, 8 MILLIGRAM, BID
     Route: 042
     Dates: start: 20141110
  89. ONDANSETRON [Concomitant]
     Active Substance: ONDANSETRON
     Dosage: 8 MG/DOSE, 2/J
     Route: 042
     Dates: start: 20141110
  90. PANTOPRAZOLE [Concomitant]
     Active Substance: PANTOPRAZOLE
     Indication: Stem cell transplant
     Dosage: 40 MG, QD /40 MG/J, 1/J
     Route: 042
     Dates: start: 20141110
  91. PANTOPRAZOLE [Concomitant]
     Active Substance: PANTOPRAZOLE
     Dosage: 40 MILLIGRAM, QD
     Route: 042
  92. PANTOPRAZOLE [Concomitant]
     Active Substance: PANTOPRAZOLE
     Indication: Stem cell transplant
     Dosage: 40 MG/J, 1/J
     Route: 042
     Dates: start: 20141110
  93. URSODIOL [Concomitant]
     Active Substance: URSODIOL
     Indication: Stem cell transplant
     Dosage: UNK, BID,250 MG/DOSE, 2/DAY
     Route: 048
     Dates: start: 20141110
  94. URSODIOL [Concomitant]
     Active Substance: URSODIOL
     Indication: Prophylaxis
     Dosage: UNK
     Route: 065
  95. URSODIOL [Concomitant]
     Active Substance: URSODIOL
     Indication: Venoocclusive liver disease
     Dosage: UNK
     Route: 065
  96. URSODIOL [Concomitant]
     Active Substance: URSODIOL
     Indication: Prophylaxis
  97. URSODIOL [Concomitant]
     Active Substance: URSODIOL
     Indication: Venoocclusive liver disease
  98. VALACYCLOVIR HYDROCHLORIDE [Concomitant]
     Active Substance: VALACYCLOVIR HYDROCHLORIDE
     Indication: Stem cell transplant
     Dosage: 1000 MILLIGRAM, QD, 500 MG/DOSE, 2/DAY/ 500 MILLIGRAM, BID
     Route: 048
     Dates: start: 20141110
  99. VALACYCLOVIR HYDROCHLORIDE [Concomitant]
     Active Substance: VALACYCLOVIR HYDROCHLORIDE
     Indication: Stem cell transplant
     Dosage: 500MG/DOSE, 2/J
     Route: 048
     Dates: start: 20141110
  100. VALACYCLOVIR HYDROCHLORIDE [Concomitant]
     Active Substance: VALACYCLOVIR HYDROCHLORIDE
     Indication: Stem cell transplant

REACTIONS (13)
  - Febrile neutropenia [Unknown]
  - Venoocclusive liver disease [Unknown]
  - Cerebral haemorrhage [Recovered/Resolved]
  - Myalgia [Unknown]
  - Sepsis [Unknown]
  - Hypersensitivity [Recovered/Resolved]
  - Granulicatella infection [Unknown]
  - Drug resistance [Unknown]
  - Thrombocytopenia [Unknown]
  - Drug ineffective [Unknown]
  - Toxicity to various agents [Unknown]
  - Off label use [Unknown]
  - Off label use [Unknown]

NARRATIVE: CASE EVENT DATE: 20141120
